FAERS Safety Report 7800892-X (Version None)
Quarter: 2011Q4

REPORT INFORMATION
  Report Type: 
  Country: None (occurrence: None)
  Receive Date: 20111006
  Receipt Date: 20111003
  Transmission Date: 20120403
  Serious: Yes (Hospitalization)
  Sender: FDA-Public Use
  Company Number: US-MERCK-1110USA00406

PATIENT
  Age: 71 Year
  Sex: Male

DRUGS (2)
  1. ZOCOR [Suspect]
     Indication: BLOOD CHOLESTEROL INCREASED
     Route: 048
     Dates: start: 20001001
  2. ZOCOR [Suspect]
     Route: 048

REACTIONS (2)
  - TYPE 2 DIABETES MELLITUS [None]
  - MUSCULAR WEAKNESS [None]
